FAERS Safety Report 14294008 (Version 1)
Quarter: 2017Q4

REPORT INFORMATION
  Report Type: Spontaneous
  Country: DE (occurrence: DE)
  Receive Date: 20171217
  Receipt Date: 20171217
  Transmission Date: 20180321
  Serious: Yes (Hospitalization)
  Sender: FDA-Public Use
  Company Number: DE-CIPLA LTD.-2017DE23738

PATIENT

DRUGS (7)
  1. PANITUMUMAB [Suspect]
     Active Substance: PANITUMUMAB
     Dosage: 210 MG, UNK
     Route: 042
  2. SKID [Concomitant]
     Dosage: 50 MG, BID
     Route: 048
     Dates: start: 201711
  3. PANITUMUMAB [Suspect]
     Active Substance: PANITUMUMAB
     Indication: COLORECTAL CANCER METASTATIC
     Dosage: 450 MG, UNK
     Route: 042
  4. FOLINIC ACID [Suspect]
     Active Substance: LEUCOVORIN
     Indication: COLORECTAL CANCER METASTATIC
     Dosage: 600-620 MG, UNK
     Route: 065
  5. IRINOTECAN [Suspect]
     Active Substance: IRINOTECAN
     Indication: COLORECTAL CANCER METASTATIC
     Dosage: 270-280 MG, UNK
     Route: 065
  6. FLUOROURACIL. [Suspect]
     Active Substance: FLUOROURACIL
     Indication: COLORECTAL CANCER METASTATIC
     Dosage: 1820-1880 MG, UNK
     Route: 042
  7. FLUOROURACIL. [Suspect]
     Active Substance: FLUOROURACIL
     Dosage: 1220-1260 MG, UNK
     Route: 040

REACTIONS (1)
  - Dermatitis acneiform [Not Recovered/Not Resolved]

NARRATIVE: CASE EVENT DATE: 20171113
